FAERS Safety Report 26154772 (Version 1)
Quarter: 2025Q4

REPORT INFORMATION
  Report Type: Spontaneous
  Country: CN (occurrence: CN)
  Receive Date: 20251215
  Receipt Date: 20251215
  Transmission Date: 20260117
  Serious: Yes (Other)
  Sender: Kenvue
  Company Number: CN-KENVUE-20251203631

PATIENT
  Age: 68 Year
  Weight: 47 kg

DRUGS (1)
  1. CHILDRENS MOTRIN [Suspect]
     Active Substance: IBUPROFEN
     Indication: Pyrexia
     Dosage: 8 MILLILITER, SINGLE
     Route: 061

REACTIONS (2)
  - Off label use [Unknown]
  - Hypovolaemic shock [Recovering/Resolving]
